FAERS Safety Report 6263116 (Version 9)
Quarter: 2013Q4

REPORT INFORMATION
  Report Type: Spontaneous
  Country: US (occurrence: US)
  Receive Date: 20070316
  Receipt Date: 20131018
  Transmission Date: 20140711
  Serious: Yes (Death, Hospitalization, Disabling, Other)
  Sender: FDA-Public Use
  Company Number: PHEH2007US02881

PATIENT
  Age: 66 Year
  Sex: Female

DRUGS (12)
  1. ZOMETA [Suspect]
     Indication: METASTASES TO BONE
     Dosage: 4 MG, QMO
     Route: 042
     Dates: start: 2003, end: 200609
  2. ARIMIDEX ^ASTRAZENECA^ [Concomitant]
  3. TAMOXIFEN [Concomitant]
  4. XELODA [Concomitant]
     Dates: start: 200608, end: 200610
  5. MORPHINE [Concomitant]
  6. VICODIN [Concomitant]
  7. DOXIL [Concomitant]
  8. GABAPENTIN [Concomitant]
  9. ONDANSETRON [Concomitant]
  10. PACLITAXEL [Concomitant]
  11. PROCHLORPERAZINE [Concomitant]
  12. AROMASIN [Concomitant]

REACTIONS (66)
  - Death [Fatal]
  - Uterine leiomyoma [Unknown]
  - Osteonecrosis of jaw [Unknown]
  - Pain in jaw [Unknown]
  - Inflammation [Unknown]
  - Tooth infection [Unknown]
  - General physical health deterioration [Unknown]
  - Pain [Unknown]
  - Decreased interest [Unknown]
  - Anxiety [Unknown]
  - Malignant neoplasm progression [Unknown]
  - Metastases to bone [Unknown]
  - Metastases to skin [Unknown]
  - Metastases to liver [Unknown]
  - Osteoarthritis [Unknown]
  - Cholelithiasis [Unknown]
  - Arthritis [Unknown]
  - Neuropathy peripheral [Unknown]
  - Back pain [Unknown]
  - Arthralgia [Unknown]
  - Urosepsis [Recovering/Resolving]
  - Neutropenia [Recovering/Resolving]
  - Orthostatic hypotension [Recovering/Resolving]
  - Incoherent [Unknown]
  - Altered state of consciousness [Recovering/Resolving]
  - Nephrolithiasis [Unknown]
  - Seborrhoeic keratosis [Unknown]
  - Coma [Recovering/Resolving]
  - Ileus paralytic [Recovering/Resolving]
  - Serology abnormal [Unknown]
  - Weight decreased [Unknown]
  - Herpes zoster [Recovered/Resolved]
  - Sinus tachycardia [Recovering/Resolving]
  - Cellulitis [Recovered/Resolved]
  - Postmenopausal haemorrhage [Unknown]
  - Anaemia [Unknown]
  - Vaginal haemorrhage [Unknown]
  - Cervical cyst [Unknown]
  - Ovarian neoplasm [Unknown]
  - Ovarian cyst [Unknown]
  - Spinal deformity [Unknown]
  - Breast cancer metastatic [Unknown]
  - Metastases to pleura [Unknown]
  - Eyelid disorder [Unknown]
  - Blepharitis [Unknown]
  - Lymph node calcification [Unknown]
  - Aortic arteriosclerosis [Unknown]
  - Aortic calcification [Unknown]
  - Mitral valve incompetence [Unknown]
  - Tricuspid valve incompetence [Unknown]
  - Mental status changes [Unknown]
  - Osteolysis [Unknown]
  - Hepatic cyst [Unknown]
  - Spinal osteoarthritis [Unknown]
  - Urinary tract infection [Unknown]
  - Faecal incontinence [Unknown]
  - Dysphagia [Unknown]
  - Bone loss [Unknown]
  - Gingival recession [Unknown]
  - Gingival inflammation [Unknown]
  - Pulpitis dental [Unknown]
  - Tooth fracture [Unknown]
  - Periodontal disease [Unknown]
  - Gingival bleeding [Unknown]
  - Bone pain [Unknown]
  - Purulence [Unknown]
